FAERS Safety Report 4375779-8 (Version None)
Quarter: 2004Q2

REPORT INFORMATION
  Report Type: 
  Country: None (occurrence: None)
  Receive Date: 20040609
  Receipt Date: 20040609
  Transmission Date: 20050107
  Serious: Yes (Life-Threatening)
  Sender: FDA-Public Use
  Company Number: None

PATIENT
  Age: 17 Year
  Sex: Male
  Weight: 80 kg

DRUGS (10)
  1. LORAZEPAM [Suspect]
     Indication: SEDATION
     Dosage: 12 MG/HR IV
     Route: 042
  2. TRAZODONE HCL [Concomitant]
  3. CHLORAL HYDRATE [Concomitant]
  4. ACETAMINOPHEN [Concomitant]
  5. NYSTATIN [Concomitant]
  6. CLONIDINE HCL [Concomitant]
  7. DUCOLAX [Concomitant]
  8. METOCLOPRAMIDE [Concomitant]
  9. ANSOPRAROLE [Concomitant]
  10. SERTRALINE HCL [Concomitant]

REACTIONS (3)
  - AGITATION [None]
  - BLOOD PRESSURE INCREASED [None]
  - GRAND MAL CONVULSION [None]
